FAERS Safety Report 12936487 (Version 2)
Quarter: 2016Q4

REPORT INFORMATION
  Report Type: Spontaneous
  Country: BR (occurrence: BR)
  Receive Date: 20161114
  Receipt Date: 20161122
  Transmission Date: 20170207
  Serious: Yes (Other)
  Sender: FDA-Public Use
  Company Number: BR-BEH-2016075109

PATIENT
  Age: 19 Year
  Sex: Female

DRUGS (14)
  1. SANDOGLOBULINA [Suspect]
     Active Substance: HUMAN IMMUNOGLOBULIN G
     Indication: MYASTHENIA GRAVIS
     Dosage: 60 G, TOT
     Route: 042
     Dates: start: 20161022, end: 20161024
  2. PYRIDOSTIGMINE [Concomitant]
     Active Substance: PYRIDOSTIGMINE
     Indication: MYASTHENIA GRAVIS
     Dosage: 60 MG, UNK
     Route: 048
     Dates: start: 201512
  3. PREDNISONE. [Concomitant]
     Active Substance: PREDNISONE
     Indication: MYASTHENIA GRAVIS
     Dosage: 60 MG, QD
     Route: 065
     Dates: start: 201512
  4. ENOXAPARIN [Concomitant]
     Active Substance: ENOXAPARIN
     Dosage: 40 MG, QD
     Route: 058
     Dates: start: 20161022
  5. MORPHINE [Concomitant]
     Active Substance: MORPHINE
     Dosage: 2 MG, Q4H
     Route: 042
     Dates: start: 20161023
  6. CEFTAZIDIME. [Concomitant]
     Active Substance: CEFTAZIDIME
     Dosage: 1 G, TID
     Route: 042
     Dates: start: 20161023
  7. ETOMIDATE. [Concomitant]
     Active Substance: ETOMIDATE
     Dosage: UNK
     Route: 042
     Dates: start: 20161023
  8. OMEPRAZOLE. [Concomitant]
     Active Substance: OMEPRAZOLE
     Dosage: 20 MG, QD
     Route: 065
     Dates: start: 20161022
  9. DIPIRONE [Concomitant]
     Active Substance: METAMIZOLE SODIUM
     Dosage: 500 MG, PRN EVERY 6 HOURS IF NECESSARY
     Route: 065
     Dates: start: 20161022
  10. OMEPRAZOLE. [Concomitant]
     Active Substance: OMEPRAZOLE
     Dosage: 40 MG, QD
     Route: 042
     Dates: start: 20161023
  11. ONDANSETRON [Concomitant]
     Active Substance: ONDANSETRON
     Dosage: 8 MG, UNK
     Route: 065
     Dates: start: 20161022
  12. DIPIRONE [Concomitant]
     Active Substance: METAMIZOLE SODIUM
     Dosage: 2 G, QID
     Route: 042
     Dates: start: 20161023
  13. FENTANYL. [Concomitant]
     Active Substance: FENTANYL
     Dosage: UNK
     Route: 065
     Dates: start: 20161023
  14. AZATHIOPRIN [Concomitant]
     Active Substance: AZATHIOPRINE
     Dosage: 50 MG, UNK
     Route: 065
     Dates: start: 20161022

REACTIONS (7)
  - Flushing [Recovered/Resolved]
  - Dysphonia [Recovering/Resolving]
  - Dyspnoea [Recovering/Resolving]
  - Erythema [Recovered/Resolved]
  - Cough [Recovering/Resolving]
  - Increased bronchial secretion [Recovering/Resolving]
  - Myasthenia gravis crisis [Not Recovered/Not Resolved]

NARRATIVE: CASE EVENT DATE: 20161023
